FAERS Safety Report 25373170 (Version 1)
Quarter: 2025Q2

REPORT INFORMATION
  Report Type: Spontaneous
  Country: US (occurrence: US)
  Receive Date: 20250529
  Receipt Date: 20250529
  Transmission Date: 20250717
  Serious: No
  Sender: CIPLA
  Company Number: US-CIPLA LTD.-2024US09889

PATIENT

DRUGS (4)
  1. ALBUTEROL [Suspect]
     Active Substance: ALBUTEROL
     Indication: Cough
     Dates: start: 202405
  2. ALBUTEROL [Suspect]
     Active Substance: ALBUTEROL
     Indication: Bronchitis
     Dates: start: 202405
  3. ALBUTEROL [Suspect]
     Active Substance: ALBUTEROL
     Dates: start: 202408
  4. ALBUTEROL [Suspect]
     Active Substance: ALBUTEROL
     Dates: start: 2024

REACTIONS (6)
  - Off label use [Unknown]
  - Product quality issue [Unknown]
  - Device delivery system issue [Unknown]
  - Device malfunction [Unknown]
  - Product container seal issue [Unknown]
  - Device issue [Unknown]

NARRATIVE: CASE EVENT DATE: 20240501
